FAERS Safety Report 12524983 (Version 1)
Quarter: 2016Q3

REPORT INFORMATION
  Report Type: Spontaneous
  Country: FR (occurrence: FR)
  Receive Date: 20160704
  Receipt Date: 20160704
  Transmission Date: 20161109
  Serious: Yes (Hospitalization)
  Sender: FDA-Public Use
  Company Number: FR-009507513-1607FRA000379

PATIENT
  Age: 17 Year
  Sex: Female

DRUGS (7)
  1. HOLOXAN [Suspect]
     Active Substance: IFOSFAMIDE
     Indication: OSTEOSARCOMA
     Dosage: UNK, CYCLICAL
     Route: 041
     Dates: start: 20090626, end: 20090629
  2. ETOPOSIDE. [Suspect]
     Active Substance: ETOPOSIDE
     Dosage: UNK
     Route: 041
     Dates: start: 20090729
  3. ETOPOSIDE. [Suspect]
     Active Substance: ETOPOSIDE
     Indication: OSTEOSARCOMA
     Dosage: UNK UNK, CYCLICAL
     Route: 041
     Dates: start: 20090626, end: 20090629
  4. EMEND [Suspect]
     Active Substance: APREPITANT
     Dosage: UNK
     Route: 048
     Dates: end: 20090801
  5. HOLOXAN [Suspect]
     Active Substance: IFOSFAMIDE
     Dosage: UNK
     Route: 041
     Dates: start: 20090627
  6. ZOPHREN (ONDANSETRON) [Suspect]
     Active Substance: ONDANSETRON
  7. VOGALENE [Suspect]
     Active Substance: METOPIMAZINE
     Indication: ANTIEMETIC SUPPORTIVE CARE
     Dosage: 10 MG/ML, CYCLICAL
     Route: 042
     Dates: start: 20090626, end: 20090628

REACTIONS (4)
  - Myoclonus [Recovered/Resolved]
  - Feeling abnormal [Recovered/Resolved]
  - Tremor [Recovered/Resolved]
  - Tremor [Recovered/Resolved]

NARRATIVE: CASE EVENT DATE: 20090628
